FAERS Safety Report 6078522-X (Version None)
Quarter: 2009Q1

REPORT INFORMATION
  Report Type: 
  Country: None (occurrence: None)
  Receive Date: 20090211
  Receipt Date: 20090211
  Transmission Date: 20090719
  Serious: Yes (Other)
  Sender: FDA-Public Use
  Company Number: None

PATIENT
  Age: 30 Year
  Sex: Female
  Weight: 77.1115 kg

DRUGS (1)
  1. MEDROXYPROGESTERONE ACETATE [Suspect]
     Indication: CONTRACEPTION
     Dosage: 1 DOSE IM
     Route: 030
     Dates: start: 20081208, end: 20081208

REACTIONS (2)
  - DERMATITIS CONTACT [None]
  - NO THERAPEUTIC RESPONSE [None]
